FAERS Safety Report 8722304 (Version 2)
Quarter: 2013Q4

REPORT INFORMATION
  Report Type: Report from Study
  Country: CA (occurrence: CA)
  Receive Date: 20120814
  Receipt Date: 20131108
  Transmission Date: 20140711
  Serious: Yes (Other)
  Sender: FDA-Public Use
  Company Number: CA-MERCK-2010SP040134

PATIENT
  Age: 5 Year
  Sex: Male
  Weight: 19.6 kg

DRUGS (7)
  1. POSACONAZOLE [Suspect]
     Indication: ANTIFUNGAL PROPHYLAXIS
     Dosage: 120.6 MG, BID
     Route: 048
     Dates: start: 20100718, end: 20100721
  2. CARBOPLATIN [Concomitant]
     Indication: CHEMOTHERAPY
     Dosage: UNK
     Dates: start: 20100716, end: 20100720
  3. CARBOPLATIN [Concomitant]
     Indication: STEM CELL TRANSPLANT
  4. ETOPOSIDE [Concomitant]
     Indication: CHEMOTHERAPY
     Dosage: UNK
     Dates: start: 20100716, end: 20100720
  5. ETOPOSIDE [Concomitant]
     Indication: STEM CELL TRANSPLANT
  6. MELPHALAN [Concomitant]
     Indication: CHEMOTHERAPY
     Dosage: UNK
     Dates: start: 20100716, end: 20100720
  7. MELPHALAN [Concomitant]
     Indication: STEM CELL TRANSPLANT

REACTIONS (1)
  - Hepatic enzyme increased [Recovered/Resolved]
